FAERS Safety Report 4770847-0 (Version None)
Quarter: 2005Q3

REPORT INFORMATION
  Report Type: 
  Country: None (occurrence: None)
  Receive Date: 20050915
  Receipt Date: 20050905
  Transmission Date: 20060218
  Serious: Yes (Death, Hospitalization)
  Sender: FDA-Public Use
  Company Number: JP-GLAXOSMITHKLINE-B0393757A

PATIENT
  Age: 71 Year
  Sex: Male

DRUGS (12)
  1. TOPOTECAN [Suspect]
     Indication: SMALL CELL LUNG CANCER STAGE UNSPECIFIED
     Dosage: 1.43MG PER DAY
     Route: 042
     Dates: start: 20040908, end: 20040910
  2. AMRUBICIN HYDROCHLORIDE [Suspect]
     Indication: DRUG USE FOR UNKNOWN INDICATION
     Dosage: 80MG PER DAY
     Route: 042
     Dates: start: 20040908, end: 20040910
  3. GRANISETRON  HCL [Concomitant]
     Dosage: 1AMP PER DAY
     Route: 042
     Dates: start: 20040908, end: 20040910
  4. SOLITA-T3 [Concomitant]
     Dosage: 200ML PER DAY
     Route: 042
     Dates: start: 20040910, end: 20040910
  5. AMINOPHYLLINE [Concomitant]
     Dosage: 250MG PER DAY
     Route: 042
     Dates: start: 20040910, end: 20040910
  6. METHYLPREDNISOLONE SODIUM SUCCINATE [Concomitant]
     Dosage: 40MG PER DAY
     Route: 042
  7. LENOGRASTIM [Concomitant]
     Dosage: 100UG PER DAY
     Route: 065
     Dates: start: 20040915, end: 20040923
  8. REBAMIPIDE [Concomitant]
     Dosage: 300MG PER DAY
     Route: 048
     Dates: start: 20040908, end: 20041008
  9. GLIMEPIRIDE [Concomitant]
     Dosage: 5MG PER DAY
     Route: 048
     Dates: start: 20040908, end: 20041008
  10. FLUTICASONE PROPIONATE [Concomitant]
     Dosage: 400UG PER DAY
     Route: 055
     Dates: start: 20040910, end: 20041008
  11. SALMETEROL XINAFOATE [Concomitant]
     Dosage: 100UG PER DAY
     Route: 055
     Dates: start: 20040917, end: 20041008
  12. SENNOSIDE [Concomitant]
     Dosage: 24MG PER DAY
     Route: 048
     Dates: start: 20040916, end: 20040926

REACTIONS (9)
  - BLOOD ALKALINE PHOSPHATASE INCREASED [None]
  - BLOOD LACTATE DEHYDROGENASE INCREASED [None]
  - HAEMOGLOBIN DECREASED [None]
  - LIVER DISORDER [None]
  - NEUTROPHIL COUNT DECREASED [None]
  - PLATELET COUNT DECREASED [None]
  - PRE-EXISTING DISEASE [None]
  - RED BLOOD CELL COUNT DECREASED [None]
  - WHITE BLOOD CELL COUNT DECREASED [None]
